FAERS Safety Report 6461725-X (Version None)
Quarter: 2009Q4

REPORT INFORMATION
  Report Type: 
  Country: None (occurrence: None)
  Receive Date: 20091130
  Receipt Date: 20091125
  Transmission Date: 20100525
  Serious: Yes (Hospitalization, Other)
  Sender: FDA-Public Use
  Company Number: FR-BRISTOL-MYERS SQUIBB COMPANY-14871487

PATIENT
  Age: 84 Year
  Sex: Male

DRUGS (8)
  1. COUMADIN [Suspect]
     Indication: CEREBROVASCULAR ACCIDENT
     Route: 048
  2. CALCIPARINE [Suspect]
     Route: 030
     Dates: start: 20091007
  3. CARDENSIEL [Concomitant]
  4. LASILIX [Concomitant]
  5. RAMIPRIL [Concomitant]
  6. LEVOTHYROXINE SODIUM [Concomitant]
  7. CORDARONE [Concomitant]
  8. PRAVASTATIN [Concomitant]

REACTIONS (2)
  - FALL [None]
  - HAEMATOMA [None]
